FAERS Safety Report 5119317-0 (Version None)
Quarter: 2006Q3

REPORT INFORMATION
  Report Type: 
  Country: None (occurrence: None)
  Receive Date: 20060929
  Receipt Date: 20060918
  Transmission Date: 20061208
  Serious: Yes (Other)
  Sender: FDA-Public Use
  Company Number: 2006084582

PATIENT
  Age: 58 Year
  Sex: Female

DRUGS (24)
  1. NEURONTIN [Suspect]
     Indication: NEUROPATHY PERIPHERAL
     Dosage: 900 MG (300 MG, 1 IN 1 D),
     Dates: start: 20020101
  2. NORVASC [Suspect]
     Indication: DRUG USE FOR UNKNOWN INDICATION
  3. XANAX [Suspect]
     Indication: DRUG USE FOR UNKNOWN INDICATION
  4. HYDROCHLOROTHIAZIDE [Suspect]
     Indication: DRUG USE FOR UNKNOWN INDICATION
  5. VICODIN [Suspect]
     Indication: PAIN
  6. PERCOCET [Suspect]
     Indication: DRUG USE FOR UNKNOWN INDICATION
  7. ACE INHIBITOR NOS (ACE INHIBITOR NOS) [Concomitant]
  8. CAPTOPRIL [Concomitant]
  9. COZAAR [Concomitant]
  10. DIOVAN [Concomitant]
  11. ATACAND [Concomitant]
  12. PROZAC [Concomitant]
  13. STATINS (HMG COA REDUCTASE INHIBITORS) [Concomitant]
  14. ZETIA [Concomitant]
  15. ACTOS [Concomitant]
  16. FISH OIL (FISH OIL) [Concomitant]
  17. GLUCOPHAGE [Concomitant]
  18. GLUCOSAMINE (GLUCOSAMINE) [Concomitant]
  19. PRILOSEC [Concomitant]
  20. FEMHRT [Concomitant]
  21. ASPIRIN [Concomitant]
  22. LISINOPRIL [Concomitant]
  23. ALTACE [Concomitant]
  24. CAPSAICIN (CAPSAICIN) [Concomitant]

REACTIONS (30)
  - ADVERSE EVENT [None]
  - ANGIONEUROTIC OEDEMA [None]
  - ANXIETY [None]
  - ARTHRALGIA [None]
  - ASTHENIA [None]
  - BLOOD PRESSURE INCREASED [None]
  - CONDITION AGGRAVATED [None]
  - COUGH [None]
  - DEAFNESS UNILATERAL [None]
  - DEPRESSION [None]
  - DIABETIC NEUROPATHY [None]
  - DIZZINESS [None]
  - DRUG INEFFECTIVE [None]
  - FATIGUE [None]
  - FIBROMYALGIA [None]
  - HYPERLIPIDAEMIA [None]
  - HYPOAESTHESIA [None]
  - INFECTION [None]
  - INFLUENZA [None]
  - MALAISE [None]
  - OEDEMA PERIPHERAL [None]
  - OSTEOARTHRITIS [None]
  - PAIN IN EXTREMITY [None]
  - PRURITUS [None]
  - RED BLOOD CELL COUNT DECREASED [None]
  - SUICIDAL IDEATION [None]
  - TOOTH DISORDER [None]
  - TOOTH LOSS [None]
  - WEIGHT INCREASED [None]
  - WHITE BLOOD CELL COUNT DECREASED [None]
